FAERS Safety Report 8488783-5 (Version None)
Quarter: 2012Q3

REPORT INFORMATION
  Report Type: 
  Country: None (occurrence: None)
  Receive Date: 20120705
  Receipt Date: 20120625
  Transmission Date: 20120928
  Serious: Yes (Other)
  Sender: FDA-Public Use
  Company Number: JP-VERTEX PHARMACEUTICALS INC.-AE-2012-009544

PATIENT
  Age: 40 Year
  Sex: Male

DRUGS (7)
  1. PEGINTERFERON ALFA-2B [Concomitant]
     Indication: HEPATITIS C
     Route: 058
     Dates: start: 20120306
  2. TELAVIC (TELAPREVIR) [Suspect]
     Indication: HEPATITIS C
     Route: 048
     Dates: start: 20120306
  3. RIBAVIRIN [Concomitant]
     Route: 048
  4. RIBAVIRIN [Concomitant]
     Indication: HEPATITIS C
     Route: 048
     Dates: start: 20120306, end: 20120409
  5. RIBAVIRIN [Concomitant]
     Route: 048
     Dates: start: 20120410
  6. TELAVIC (TELAPREVIR) [Suspect]
     Route: 048
     Dates: end: 20120529
  7. PEGINTERFERON ALFA-2B [Concomitant]
     Route: 058

REACTIONS (2)
  - WHITE BLOOD CELL COUNT DECREASED [None]
  - NEUTROPHIL COUNT DECREASED [None]
